FAERS Safety Report 7209804-3 (Version None)
Quarter: 2011Q1

REPORT INFORMATION
  Report Type: 
  Country: None (occurrence: None)
  Receive Date: 20110104
  Receipt Date: 20101227
  Transmission Date: 20110831
  Serious: Yes (Hospitalization)
  Sender: FDA-Public Use
  Company Number: JP-MERCK-1011USA03465

PATIENT
  Age: 86 Year
  Sex: Female

DRUGS (4)
  1. LIPIDIL [Concomitant]
     Route: 065
  2. NIVADIL [Concomitant]
     Route: 065
  3. JANUVIA [Suspect]
     Indication: TYPE 2 DIABETES MELLITUS
     Route: 048
     Dates: start: 20100224, end: 20101003
  4. MICARDIS [Concomitant]
     Route: 065

REACTIONS (2)
  - HYPOGLYCAEMIA [None]
  - THALAMIC INFARCTION [None]
